FAERS Safety Report 8391994-0 (Version None)
Quarter: 2012Q2

REPORT INFORMATION
  Report Type: 
  Country: None (occurrence: None)
  Receive Date: 20120529
  Receipt Date: 20120525
  Transmission Date: 20120825
  Serious: Yes (Hospitalization)
  Sender: FDA-Public Use
  Company Number: FR-ROCHE-1072987

PATIENT
  Sex: Male

DRUGS (4)
  1. SINGULAIR [Concomitant]
  2. FLUTICASONE PROPIONATE/SALMETEROL [Concomitant]
  3. VENTOLIN [Concomitant]
  4. XOLAIR [Suspect]
     Indication: ASTHMA
     Dates: start: 20120523

REACTIONS (1)
  - ASTHMA [None]
